FAERS Safety Report 4900124-6 (Version None)
Quarter: 2006Q1

REPORT INFORMATION
  Report Type: 
  Country: None (occurrence: None)
  Receive Date: 20060203
  Receipt Date: 20060125
  Transmission Date: 20060701
  Serious: Yes (Death)
  Sender: FDA-Public Use
  Company Number: CN-AVENTIS-200610747GDDC

PATIENT
  Age: 70 Year
  Sex: Male
  Weight: 71.5 kg

DRUGS (5)
  1. TAXOTERE [Suspect]
     Indication: LUNG NEOPLASM MALIGNANT
     Route: 042
     Dates: start: 20060110, end: 20060110
  2. TAXOTERE [Suspect]
     Indication: METASTASES TO ADRENALS
     Route: 042
     Dates: start: 20060110, end: 20060110
  3. TAXOTERE [Suspect]
     Indication: METASTASES TO KIDNEY
     Route: 042
     Dates: start: 20060110, end: 20060110
  4. TAXOTERE [Suspect]
     Indication: METASTASES TO LIVER
     Route: 042
     Dates: start: 20060110, end: 20060110
  5. CARBOPLATIN [Suspect]
     Indication: LUNG NEOPLASM MALIGNANT
     Route: 042
     Dates: start: 20060111, end: 20060111

REACTIONS (3)
  - BONE MARROW FAILURE [None]
  - LUNG INFECTION [None]
  - SHOCK [None]
